FAERS Safety Report 7767880-3 (Version None)
Quarter: 2011Q3

REPORT INFORMATION
  Report Type: 
  Country: None (occurrence: None)
  Receive Date: 20110922
  Receipt Date: 20110615
  Transmission Date: 20111222
  Serious: No
  Sender: FDA-Public Use
  Company Number: US-ASTRAZENECA-2011SE36551

PATIENT
  Age: 50 Year
  Sex: Male

DRUGS (3)
  1. PRILOSEC OTC [Concomitant]
     Route: 048
  2. LEVOXYL [Concomitant]
  3. SEROQUEL XR [Suspect]
     Indication: BIPOLAR DISORDER
     Route: 048

REACTIONS (2)
  - MOOD ALTERED [None]
  - SOMNOLENCE [None]
